FAERS Safety Report 19004080 (Version 1)
Quarter: 2021Q1

REPORT INFORMATION
  Report Type: Spontaneous
  Country: JP (occurrence: JP)
  Receive Date: 20210312
  Receipt Date: 20210312
  Transmission Date: 20210420
  Serious: Yes (Life-Threatening, Hospitalization)
  Sender: FDA-Public Use
  Company Number: JP-ASTRAZENECA-2021A126839

PATIENT
  Age: 82 Year
  Sex: Female

DRUGS (7)
  1. FUROSEMIDE. [Concomitant]
     Active Substance: FUROSEMIDE
     Dosage: DOSE UNKNOWN
     Route: 065
  2. BROTIZOLAM [Concomitant]
     Active Substance: BROTIZOLAM
     Dosage: DOSE UNKNOWN
     Route: 065
  3. AMLODIPINE [Concomitant]
     Active Substance: AMLODIPINE BESYLATE
     Dosage: DOSE UNKNOWN
     Route: 065
  4. VALSARTAN. [Concomitant]
     Active Substance: VALSARTAN
     Dosage: DOSE UNKNOWN
     Route: 065
  5. UBIDECARENONE. [Concomitant]
     Active Substance: UBIDECARENONE
     Dosage: DOSE UNKNOWN
     Route: 065
  6. DIAZEPAM. [Concomitant]
     Active Substance: DIAZEPAM
     Dosage: DOSE UNKNOWN
     Route: 065
  7. OMEPRAL [Suspect]
     Active Substance: OMEPRAZOLE
     Dosage: DOSE UNKNOWN
     Route: 048

REACTIONS (4)
  - Sepsis [Unknown]
  - Ureterolithiasis [Unknown]
  - Septic shock [Recovering/Resolving]
  - Pyelonephritis [Unknown]

NARRATIVE: CASE EVENT DATE: 2015
